FAERS Safety Report 17209304 (Version 3)
Quarter: 2020Q1

REPORT INFORMATION
  Report Type: Spontaneous
  Country: US (occurrence: US)
  Receive Date: 20191227
  Receipt Date: 20200108
  Transmission Date: 20200409
  Serious: Yes (Death)
  Sender: FDA-Public Use
  Company Number: US-CELGENEUS-USA-20191209842

PATIENT
  Age: 74 Year
  Sex: Male

DRUGS (4)
  1. FAMVIR [Concomitant]
     Active Substance: FAMCICLOVIR
     Indication: INFECTION PROPHYLAXIS
     Route: 065
     Dates: start: 20191209
  2. LEVAQUIN [Concomitant]
     Active Substance: LEVOFLOXACIN
     Indication: INFECTION PROPHYLAXIS
     Route: 065
     Dates: start: 20191209
  3. POMALYST [Suspect]
     Active Substance: POMALIDOMIDE
     Dosage: 4 MILLIGRAM
     Route: 048
     Dates: start: 20190808, end: 20191204
  4. POMALYST [Suspect]
     Active Substance: POMALIDOMIDE
     Indication: PLASMA CELL MYELOMA
     Dosage: 4 MILLIGRAM
     Route: 048
     Dates: start: 201804

REACTIONS (2)
  - Device related infection [Fatal]
  - Stent-graft endoleak [Fatal]

NARRATIVE: CASE EVENT DATE: 20191205
